FAERS Safety Report 19624462 (Version 1)
Quarter: 2021Q3

REPORT INFORMATION
  Report Type: Spontaneous
  Country: US (occurrence: US)
  Receive Date: 20210728
  Receipt Date: 20210728
  Transmission Date: 20211014
  Serious: No
  Sender: FDA-Public Use
  Company Number: US-TEVA-2021-US-1932598

PATIENT
  Age: 56 Year
  Sex: Female
  Weight: 56.7 kg

DRUGS (12)
  1. COVID?19 VACCINE NOS. [Suspect]
     Active Substance: COVID-19 VACCINE NOS
     Dosage: SECOND DOSE, RIGHT ARM
     Route: 065
     Dates: start: 20210405
  2. CEVIMELINE. [Concomitant]
     Active Substance: CEVIMELINE
     Indication: DRY MOUTH
     Dosage: 60 MILLIGRAM DAILY;
     Route: 065
     Dates: start: 2013
  3. FLUOCINOLONE [Concomitant]
     Active Substance: FLUOCINOLONE
     Route: 061
     Dates: start: 20201124
  4. TRAZODONE [Concomitant]
     Active Substance: TRAZODONE HYDROCHLORIDE
     Dosage: AT NIGHT
     Route: 065
     Dates: start: 2018
  5. MIDODRINE [Concomitant]
     Active Substance: MIDODRINE
     Dosage: 5 MILLIGRAM DAILY;
     Route: 065
     Dates: start: 2013
  6. SIMVASTATIN. [Concomitant]
     Active Substance: SIMVASTATIN
     Dosage: 20 MILLIGRAM DAILY; AT NIGHT
     Route: 065
     Dates: end: 20190711
  7. ESTRADIOL. [Concomitant]
     Active Substance: ESTRADIOL
     Indication: VULVOVAGINAL DRYNESS
     Dosage: AT BEDTIME
     Route: 065
     Dates: start: 20210225
  8. KETOCONAZOLE. [Concomitant]
     Active Substance: KETOCONAZOLE
     Dosage: EVERY OTHER WEEK
     Route: 065
     Dates: start: 20200205
  9. OMEPRAZOLE DELAYED RELEASE CAPSULES,10 MG, 20 MG AND 30 MG [Suspect]
     Active Substance: OMEPRAZOLE
     Route: 065
     Dates: start: 20190626
  10. DIPHENOXYLATE [Concomitant]
     Active Substance: DIPHENOXYLATE
     Route: 065
     Dates: start: 20190610
  11. NEO/POLY/DEX [Concomitant]
     Active Substance: DEXAMETHASONE\NEOMYCIN\POLYMYXIN B SULFATE
     Indication: EYE IRRITATION
     Route: 065
     Dates: start: 20190608
  12. DESONIDE/KETOCONAZOLE [Concomitant]
     Route: 061
     Dates: start: 20201124

REACTIONS (11)
  - Vision blurred [Recovered/Resolved]
  - Feeling hot [Recovered/Resolved]
  - Dyspnoea [Recovering/Resolving]
  - Pain [Recovered/Resolved]
  - Eye pain [Recovered/Resolved]
  - Chest pain [Recovering/Resolving]
  - Influenza [Recovered/Resolved]
  - Asthenia [Recovered/Resolved]
  - Lower respiratory tract congestion [Recovering/Resolving]
  - Cough [Not Recovered/Not Resolved]
  - Nasopharyngitis [Recovered/Resolved]

NARRATIVE: CASE EVENT DATE: 20210406
